FAERS Safety Report 13238744 (Version 1)
Quarter: 2017Q1

REPORT INFORMATION
  Report Type: Spontaneous
  Country: US (occurrence: US)
  Receive Date: 20170216
  Receipt Date: 20170216
  Transmission Date: 20170428
  Serious: Yes (Other)
  Sender: FDA-Public Use
  Company Number: US-MEDIMMUNE-MEDI-0002003

PATIENT
  Age: 73 Year
  Sex: Female
  Weight: 78 kg

DRUGS (5)
  1. RADIATION THERAPY [Concomitant]
     Active Substance: RADIATION THERAPY
     Dates: start: 20040517
  2. WELLBUTRIN [Concomitant]
     Active Substance: BUPROPION HYDROCHLORIDE
  3. ETHYOL [Suspect]
     Active Substance: AMIFOSTINE
     Indication: RADIOTHERAPY
     Dosage: UNK
     Route: 042
     Dates: start: 20040517, end: 20040528
  4. HYDROCODONE [Concomitant]
     Active Substance: HYDROCODONE
  5. DURAGESIC [Concomitant]
     Active Substance: FENTANYL

REACTIONS (2)
  - Dermatitis exfoliative [Not Recovered/Not Resolved]
  - Stomatitis [Not Recovered/Not Resolved]

NARRATIVE: CASE EVENT DATE: 20040601
